FAERS Safety Report 14967128 (Version 1)
Quarter: 2018Q2

REPORT INFORMATION
  Report Type: Spontaneous
  Country: US (occurrence: US)
  Receive Date: 20180604
  Receipt Date: 20180604
  Transmission Date: 20180711
  Serious: No
  Sender: FDA-Public Use
  Company Number: US-CHEPLA-C20180098

PATIENT
  Age: 34 Year
  Sex: Male

DRUGS (3)
  1. ATRA [Suspect]
     Active Substance: TRETINOIN
     Indication: ACUTE PROMYELOCYTIC LEUKAEMIA
     Dosage: 24 MG/MM2 DAILY OVER THE FIRST WEEK OF TREATMENT
     Route: 065
  2. ATRA [Suspect]
     Active Substance: TRETINOIN
     Indication: ACUTE PROMYELOCYTIC LEUKAEMIA
     Dosage: TREATED INITIALLY PER THE GIMEMA PROTOCOL WITH DAILY ATRA 45 MG/MM2 (= INDUCTION THERAPY)
     Route: 065
  3. ATRA [Suspect]
     Active Substance: TRETINOIN
     Indication: ACUTE PROMYELOCYTIC LEUKAEMIA
     Dosage: SUBSEQUENT CONSOLIDATION WITH THREE CYCLES OF 45 MG/MM2 ATRA (= CONSOLIDATION THERAPY)
     Route: 065

REACTIONS (1)
  - White blood cell count increased [Recovered/Resolved]

NARRATIVE: CASE EVENT DATE: 2016
